FAERS Safety Report 5168104-6 (Version None)
Quarter: 2006Q4

REPORT INFORMATION
  Report Type: 
  Country: None (occurrence: None)
  Receive Date: 20061208
  Receipt Date: 20061128
  Transmission Date: 20070319
  Serious: Yes (Hospitalization)
  Sender: FDA-Public Use
  Company Number: GBWYE676528NOV06

PATIENT
  Age: 66 Year
  Sex: Male

DRUGS (3)
  1. ENBREL [Suspect]
     Indication: RHEUMATOID ARTHRITIS
     Dosage: UNKNOWN
     Route: 058
  2. SULFASALAZINE [Suspect]
     Indication: RHEUMATOID ARTHRITIS
     Dosage: UNKNOWN
     Route: 048
     Dates: end: 20061109
  3. FOLIC ACID [Concomitant]
     Dosage: 5MG, FREQUENCY UNKNOWN
     Route: 048

REACTIONS (4)
  - FAECES DISCOLOURED [None]
  - HEPATITIS CHOLESTATIC [None]
  - JAUNDICE [None]
  - LETHARGY [None]
